FAERS Safety Report 20032040 (Version 1)
Quarter: 2021Q4

REPORT INFORMATION
  Report Type: Spontaneous
  Country: US (occurrence: US)
  Receive Date: 20211103
  Receipt Date: 20211103
  Transmission Date: 20220303
  Serious: No
  Sender: FDA-Public Use
  Company Number: US-ALLERGAN-2115554US

PATIENT
  Sex: Male

DRUGS (7)
  1. VRAYLAR [Suspect]
     Active Substance: CARIPRAZINE
     Indication: Bipolar disorder
     Dosage: 1.5 MG
     Route: 048
  2. WELLBUTRIN [Concomitant]
     Active Substance: BUPROPION HYDROCHLORIDE
  3. BUSPAR [Concomitant]
     Active Substance: BUSPIRONE HYDROCHLORIDE
  4. LAMOTRIGINE [Concomitant]
     Active Substance: LAMOTRIGINE
  5. PRAZOSIN [Concomitant]
     Active Substance: PRAZOSIN
  6. RISPERIDONE [Concomitant]
     Active Substance: RISPERIDONE
  7. XANAX [Concomitant]
     Active Substance: ALPRAZOLAM
     Dosage: 1MG 3X/DAY AS NEEDED

REACTIONS (1)
  - Product dose omission issue [Unknown]
